FAERS Safety Report 20017562 (Version 2)
Quarter: 2021Q4

REPORT INFORMATION
  Report Type: Spontaneous
  Country: US (occurrence: None)
  Receive Date: 20211031
  Receipt Date: 20211105
  Transmission Date: 20220303
  Serious: Yes (Other)
  Sender: FDA-Public Use
  Company Number: US-ROCHE-2862629

PATIENT
  Sex: Female

DRUGS (15)
  1. ACTEMRA [Suspect]
     Active Substance: TOCILIZUMAB
     Indication: Giant cell arteritis
     Dosage: 162 MG/0.9 M
     Route: 058
  2. ACTEMRA [Suspect]
     Active Substance: TOCILIZUMAB
  3. ACTEMRA [Suspect]
     Active Substance: TOCILIZUMAB
     Indication: Polymyalgia rheumatica
  4. ACTEMRA [Suspect]
     Active Substance: TOCILIZUMAB
  5. BACTRIM DS [Concomitant]
     Active Substance: SULFAMETHOXAZOLE\TRIMETHOPRIM
  6. DIGOXIN [Concomitant]
     Active Substance: DIGOXIN
  7. ELIQUIS [Concomitant]
     Active Substance: APIXABAN
  8. LEVOTHYROXINE [Concomitant]
     Active Substance: LEVOTHYROXINE
  9. MONTELUKAST [Concomitant]
     Active Substance: MONTELUKAST SODIUM
  10. OMEPRAZOLE [Concomitant]
     Active Substance: OMEPRAZOLE
  11. PREDNISONE [Concomitant]
     Active Substance: PREDNISONE
  12. PREDNISONE [Concomitant]
     Active Substance: PREDNISONE
  13. SOTALOL HYDROCHLORIDE [Concomitant]
     Active Substance: SOTALOL HYDROCHLORIDE
  14. SOTALOL HYDROCHLORIDE [Concomitant]
     Active Substance: SOTALOL HYDROCHLORIDE
  15. ZESTORETIC [Concomitant]
     Active Substance: HYDROCHLOROTHIAZIDE\LISINOPRIL
     Dosage: 20-25 MG

REACTIONS (1)
  - Atrial fibrillation [Unknown]
